FAERS Safety Report 6824148-7 (Version None)
Quarter: 2010Q3

REPORT INFORMATION
  Report Type: 
  Country: None (occurrence: None)
  Receive Date: 20100708
  Receipt Date: 20061006
  Transmission Date: 20110219
  Serious: No
  Sender: FDA-Public Use
  Company Number: US-PFIZER INC-2006123094

PATIENT
  Sex: Female
  Weight: 110.68 kg

DRUGS (4)
  1. CHANTIX [Suspect]
     Indication: EX-TOBACCO USER
     Route: 048
     Dates: start: 20060901
  2. LUVOX [Concomitant]
     Route: 048
  3. PROLIXIN [Concomitant]
     Route: 048
  4. DEPO-PROVERA [Concomitant]

REACTIONS (1)
  - DRUG INEFFECTIVE [None]
